FAERS Safety Report 7531488-5 (Version None)
Quarter: 2011Q2

REPORT INFORMATION
  Report Type: 
  Country: None (occurrence: None)
  Receive Date: 20110608
  Receipt Date: 20110520
  Transmission Date: 20111010
  Serious: Yes (Life-Threatening, Hospitalization, Other)
  Sender: FDA-Public Use
  Company Number: US-AMGEN-KDL331779

PATIENT
  Age: 88 Year
  Sex: Male
  Weight: 77.914 kg

DRUGS (5)
  1. PLACEBO [Suspect]
     Dosage: 60000 IU, UNK
     Route: 042
     Dates: start: 20090122
  2. PLAVIX [Concomitant]
     Dosage: 75 MG, UNK
     Dates: start: 20090122
  3. BLINDED EPOETIN ALFA [Suspect]
     Dosage: 60000 IU, UNK
     Route: 042
     Dates: start: 20090122
  4. ASPIRIN [Concomitant]
     Dosage: 325 MG, UNK
     Dates: start: 20090122
  5. ZOCOR [Concomitant]
     Dosage: 40 MG, UNK
     Dates: start: 20090124

REACTIONS (2)
  - THROMBOSIS IN DEVICE [None]
  - MYOCARDIAL INFARCTION [None]
